FAERS Safety Report 10804230 (Version 1)
Quarter: 2015Q1

REPORT INFORMATION
  Report Type: Report from Study
  Country: US (occurrence: US)
  Receive Date: 20150217
  Receipt Date: 20150217
  Transmission Date: 20150721
  Serious: No
  Sender: FDA-Public Use
  Company Number: US-ABBVIE-14K-163-1240735-00

PATIENT
  Age: 37 Year
  Sex: Female

DRUGS (1)
  1. HUMIRA [Suspect]
     Active Substance: ADALIMUMAB
     Indication: PRODUCT USED FOR UNKNOWN INDICATION
     Dates: start: 2012

REACTIONS (4)
  - Liquid product physical issue [Unknown]
  - Poor quality drug administered [Unknown]
  - Incorrect product storage [Unknown]
  - Product quality issue [Unknown]

NARRATIVE: CASE EVENT DATE: 20140521
